FAERS Safety Report 9309813 (Version 1)
Quarter: 2013Q2

REPORT INFORMATION
  Report Type: Spontaneous
  Country: US (occurrence: US)
  Receive Date: 20130525
  Receipt Date: 20130525
  Transmission Date: 20140414
  Serious: No
  Sender: FDA-Public Use
  Company Number: US201207007344

PATIENT
  Sex: Male

DRUGS (5)
  1. BYDUREON [Suspect]
     Indication: TYPE 2 DIABETES MELLITUS
     Route: 058
     Dates: start: 201206
  2. BYETTA [Suspect]
     Route: 058
  3. ACTOS [Concomitant]
     Indication: TYPE 2 DIABETES MELLITUS
     Route: 048
  4. KOMBOGLYZE [Concomitant]
     Indication: TYPE 2 DIABETES MELLITUS
  5. EXENATIDE UNK STRENGTH PEN, DISPOSABLE DEVICE [Concomitant]

REACTIONS (3)
  - Blood glucose abnormal [Unknown]
  - Glycosylated haemoglobin increased [Not Recovered/Not Resolved]
  - Underdose [Recovered/Resolved]
